FAERS Safety Report 9707736 (Version 6)
Quarter: 2014Q2

REPORT INFORMATION
  Report Type: Spontaneous
  Country: US (occurrence: US)
  Receive Date: 20131125
  Receipt Date: 20140506
  Transmission Date: 20141212
  Serious: Yes (Hospitalization, Disabling, Other)
  Sender: FDA-Public Use
  Company Number: US-009507513-1111USA03008

PATIENT
  Sex: Female
  Weight: 61.22 kg

DRUGS (4)
  1. FOSAMAX [Suspect]
     Indication: OSTEOPOROSIS
     Dosage: 70 MG, QW
     Route: 048
     Dates: end: 201004
  2. ALENDRONATE SODIUM [Suspect]
     Dosage: 70 MG, UNK
  3. CALCIUM (UNSPECIFIED) (+) VITAMIN D (UNSPECIFIED) [Concomitant]
     Dosage: 1 TAB, BID
     Route: 048
     Dates: start: 1994
  4. VITAMIN E [Concomitant]
     Dosage: 1 TAB BID
     Route: 048
     Dates: start: 1994

REACTIONS (22)
  - Intramedullary rod insertion [Unknown]
  - Intramedullary rod insertion [Unknown]
  - Uterine cancer [Unknown]
  - Breast cancer stage IV [Unknown]
  - Endometrial cancer stage IV [Unknown]
  - Femur fracture [Recovered/Resolved]
  - Femur fracture [Recovered/Resolved]
  - Radiotherapy [Unknown]
  - Osteopenia [Unknown]
  - Pain [Unknown]
  - Glaucoma [Unknown]
  - Essential hypertension [Unknown]
  - Anxiety [Unknown]
  - Atrioventricular block first degree [Unknown]
  - Anaemia postoperative [Recovering/Resolving]
  - Joint injury [Unknown]
  - Eye laser surgery [Unknown]
  - Spinal osteoarthritis [Unknown]
  - Hyperparathyroidism primary [Unknown]
  - Goitre [Unknown]
  - Hysterectomy [Unknown]
  - Constipation [Unknown]
